FAERS Safety Report 6009092-X (Version None)
Quarter: 2008Q4

REPORT INFORMATION
  Report Type: 
  Country: None (occurrence: None)
  Receive Date: 20081216
  Receipt Date: 20081203
  Transmission Date: 20090506
  Serious: Yes (Life-Threatening, Other)
  Sender: FDA-Public Use
  Company Number: 081201-0000961

PATIENT
  Age: 27 Year
  Sex: Female

DRUGS (7)
  1. COSMEGEN [Suspect]
     Indication: GESTATIONAL TROPHOBLASTIC TUMOUR
     Dosage: 0.5 MG; IV
     Route: 042
  2. ETOPOSIDE [Suspect]
     Indication: GESTATIONAL TROPHOBLASTIC TUMOUR
     Dosage: 100 MG/M**2; IV
     Route: 042
  3. SODIUM PERCHLORATE [Concomitant]
  4. METHIMAZOLE [Concomitant]
  5. PROPRANOLOL [Concomitant]
  6. METHOTREXATE [Suspect]
     Indication: GESTATIONAL TROPHOBLASTIC TUMOUR
     Dosage: 100 MG/M**2; 200 MG/M**2; IV
     Route: 042
  7. LEUCOVORIN CALCIUM [Suspect]
     Indication: GESTATIONAL TROPHOBLASTIC TUMOUR
     Dosage: 15 MG; IV
     Route: 042

REACTIONS (4)
  - BRAIN OEDEMA [None]
  - GENERAL PHYSICAL CONDITION ABNORMAL [None]
  - RESPIRATORY FAILURE [None]
  - THROMBOCYTOPENIA [None]
